FAERS Safety Report 8192700-5 (Version None)
Quarter: 2012Q1

REPORT INFORMATION
  Report Type: 
  Country: None (occurrence: None)
  Receive Date: 20120221
  Receipt Date: 20111114
  Transmission Date: 20120608
  Serious: No
  Sender: FDA-Public Use
  Company Number: 1000025444

PATIENT
  Age: 74 Year
  Sex: Female

DRUGS (5)
  1. VIIBRYD [Suspect]
     Dosage: 10 MG (10 MG, 1 IN 1 D), ORAL; 20 MG (20 MG, 1 IN 1 D), ORAL; 40 MG (40 MG, 1 IN 1 D),ORAL
     Route: 048
     Dates: start: 20111001
  2. VIIBRYD [Suspect]
     Dosage: 10 MG (10 MG, 1 IN 1 D), ORAL; 20 MG (20 MG, 1 IN 1 D), ORAL; 40 MG (40 MG, 1 IN 1 D),ORAL
     Route: 048
     Dates: start: 20110901, end: 20111001
  3. VIIBRYD [Suspect]
     Dosage: 10 MG (10 MG, 1 IN 1 D), ORAL; 20 MG (20 MG, 1 IN 1 D), ORAL; 40 MG (40 MG, 1 IN 1 D),ORAL
     Route: 048
     Dates: start: 20110901, end: 20110901
  4. XANXA (ALPRAZOLAM) (ALPRAZOLAM) [Concomitant]
  5. ASPIRIN [Concomitant]

REACTIONS (1)
  - ALOPECIA [None]
